FAERS Safety Report 16303635 (Version 2)
Quarter: 2019Q2

REPORT INFORMATION
  Report Type: Report from Study
  Country: GR (occurrence: GR)
  Receive Date: 20190513
  Receipt Date: 20190520
  Transmission Date: 20190711
  Serious: Yes (Death)
  Sender: FDA-Public Use
  Company Number: GR-EMD SERONO-E2B_90067934

PATIENT
  Age: 50 Year
  Sex: Female
  Weight: 43 kg

DRUGS (3)
  1. AVELUMAB [Suspect]
     Active Substance: AVELUMAB
     Indication: SQUAMOUS CELL CARCINOMA OF HEAD AND NECK
     Dosage: 430 MG, DAY 1 OF LEAD-IN PHASE: DAYS 8, 25, 39 OF CRT PHASE; EVERY 2 WEEKS DURING MAINTENANCE PHASE
     Route: 041
     Dates: start: 20181017, end: 20190503
  2. AMLODIPINE [Concomitant]
     Active Substance: AMLODIPINE BESYLATE
     Indication: HYPERTENSION
     Dosage: 5 MG, DAILY
     Route: 048
     Dates: start: 20190226
  3. CISPLATIN. [Suspect]
     Active Substance: CISPLATIN
     Indication: SQUAMOUS CELL CARCINOMA OF HEAD AND NECK
     Dosage: 161.9 MG, DAYS 1, 22 AND 43 OF CRT PHASE
     Route: 041
     Dates: start: 20181024, end: 20181205

REACTIONS (1)
  - Death [Fatal]

NARRATIVE: CASE EVENT DATE: 20190508
